FAERS Safety Report 25674438 (Version 1)
Quarter: 2025Q3

REPORT INFORMATION
  Report Type: Other
  Country: EU (occurrence: EU)
  Receive Date: 20250813
  Receipt Date: 20250813
  Transmission Date: 20251020
  Serious: Yes (Hospitalization)
  Sender: ZYDUS PHARM
  Company Number: None

PATIENT

DRUGS (5)
  1. SPIRONOLACTONE [Suspect]
     Active Substance: SPIRONOLACTONE
     Indication: Toxicity to various agents
     Route: 048
     Dates: start: 20250419, end: 20250419
  2. BISOPROLOL [Suspect]
     Active Substance: BISOPROLOL
     Indication: Toxicity to various agents
     Route: 048
     Dates: start: 20250419, end: 20250419
  3. ENTRESTO [Suspect]
     Active Substance: SACUBITRIL\VALSARTAN
     Indication: Toxicity to various agents
     Route: 048
     Dates: start: 20250419, end: 20250419
  4. HYDROXYZINE HYDROCHLORIDE [Suspect]
     Active Substance: HYDROXYZINE HYDROCHLORIDE
     Indication: Toxicity to various agents
     Route: 048
     Dates: start: 20250419, end: 20250419
  5. KARDEGIC [Suspect]
     Active Substance: ASPIRIN DL-LYSINE
     Indication: Toxicity to various agents
     Route: 048
     Dates: start: 20250419, end: 20250419

REACTIONS (4)
  - Bradycardia [Recovered/Resolved]
  - Psychomotor skills impaired [Recovered/Resolved]
  - Hypotension [Recovered/Resolved]
  - Toxicity to various agents [Recovered/Resolved]

NARRATIVE: CASE EVENT DATE: 20250419
